FAERS Safety Report 6917914-0 (Version None)
Quarter: 2010Q3

REPORT INFORMATION
  Report Type: 
  Country: None (occurrence: None)
  Receive Date: 20100810
  Receipt Date: 20090828
  Transmission Date: 20110219
  Serious: Yes (Other)
  Sender: FDA-Public Use
  Company Number: US-PFIZER INC-2009255307

PATIENT
  Sex: Male
  Weight: 77.098 kg

DRUGS (4)
  1. TOVIAZ [Suspect]
     Indication: URINARY INCONTINENCE
  2. FOSAMAX [Concomitant]
     Dosage: 70 UNK, WEEKLY
  3. ALTACE [Concomitant]
     Dosage: 2.5 UNK, UNK
  4. FLOVENT [Concomitant]
     Dosage: 110 UNK, UNK

REACTIONS (2)
  - URINARY RETENTION [None]
  - WHITE BLOOD CELL COUNT ABNORMAL [None]
